FAERS Safety Report 21015021 (Version 1)
Quarter: 2022Q2

REPORT INFORMATION
  Report Type: Spontaneous
  Country: US (occurrence: US)
  Receive Date: 20220628
  Receipt Date: 20220628
  Transmission Date: 20220720
  Serious: Yes (Other)
  Sender: FDA-Public Use
  Company Number: US-CELLTRION INC.-2022US009855

PATIENT

DRUGS (2)
  1. TRUXIMA [Suspect]
     Active Substance: RITUXIMAB-ABBS
     Indication: Deep vein thrombosis
     Dosage: 800 MG, WEEKLY (3/08 THROUGH 3/29)
  2. TRUXIMA [Suspect]
     Active Substance: RITUXIMAB-ABBS
     Dosage: 800 MG, WEEKLY (5/18 THROUGH 6/15)

REACTIONS (2)
  - Deep vein thrombosis [Unknown]
  - Off label use [Unknown]
